FAERS Safety Report 5007053-0 (Version None)
Quarter: 2006Q1

REPORT INFORMATION
  Report Type: 
  Country: None (occurrence: None)
  Receive Date: 20060320
  Receipt Date: 20050822
  Transmission Date: 20060701
  Serious: Yes (Hospitalization)
  Sender: FDA-Public Use
  Company Number: 2005-08-1634

PATIENT
  Sex: Female

DRUGS (1)
  1. PEG-INTRON [Suspect]
     Dosage: 150 MCG SUBCUTANEOUS
     Route: 058

REACTIONS (3)
  - DIABETES MELLITUS [None]
  - IMMUNE SYSTEM DISORDER [None]
  - PNEUMONIA [None]
